FAERS Safety Report 5199124-3 (Version None)
Quarter: 2007Q1

REPORT INFORMATION
  Report Type: 
  Country: None (occurrence: None)
  Receive Date: 20070104
  Receipt Date: 20061226
  Transmission Date: 20070707
  Serious: Yes (Other)
  Sender: FDA-Public Use
  Company Number: US-PFIZER INC-2007000055

PATIENT
  Sex: Male
  Weight: 80.7 kg

DRUGS (10)
  1. NEURONTIN [Suspect]
     Indication: NEUROPATHY PERIPHERAL
     Route: 048
  2. LYRICA [Suspect]
     Indication: NEUROPATHY PERIPHERAL
     Route: 048
  3. METHOCARBAMOL [Concomitant]
     Route: 048
  4. METHADONE HCL [Concomitant]
     Route: 048
  5. CELEBREX [Concomitant]
     Route: 048
  6. ACIPHEX [Concomitant]
     Route: 048
  7. HYZAAR [Concomitant]
     Route: 048
  8. SINEMET [Concomitant]
     Route: 048
  9. PROVIGIL [Concomitant]
     Route: 048
  10. CYMBALTA [Concomitant]
     Route: 048

REACTIONS (6)
  - DIZZINESS [None]
  - FEELING ABNORMAL [None]
  - HYPERHIDROSIS [None]
  - MYALGIA [None]
  - PAIN IN EXTREMITY [None]
  - VISION BLURRED [None]
